FAERS Safety Report 14927811 (Version 2)
Quarter: 2018Q3

REPORT INFORMATION
  Report Type: Report from Study
  Country: FR (occurrence: FR)
  Receive Date: 20180523
  Receipt Date: 20180705
  Transmission Date: 20181010
  Serious: Yes (Death, Hospitalization)
  Sender: FDA-Public Use
  Company Number: FR-BAYER-2018-096391

PATIENT
  Age: 77 Year
  Sex: Female
  Weight: 74 kg

DRUGS (4)
  1. TRACLEER [Concomitant]
     Active Substance: BOSENTAN
     Indication: PULMONARY ARTERIAL HYPERTENSION
     Dosage: 125 MG, BID
     Route: 048
     Dates: start: 20120806, end: 20150814
  2. LASILIX [Concomitant]
     Active Substance: FUROSEMIDE
     Indication: PULMONARY ARTERIAL HYPERTENSION
     Dosage: 250 MG, BID
     Route: 048
     Dates: start: 20120806, end: 20150730
  3. FUROSEMIDE. [Concomitant]
     Active Substance: FUROSEMIDE
     Indication: PULMONARY ARTERIAL HYPERTENSION
     Dosage: 250 MG, UNK
     Route: 042
     Dates: start: 20150731, end: 20150814
  4. ADEMPAS [Suspect]
     Active Substance: RIOCIGUAT
     Dosage: UNK

REACTIONS (6)
  - Pulmonary arterial hypertension [Fatal]
  - Atrial tachycardia [None]
  - Cardiogenic shock [None]
  - Respiratory disorder [None]
  - Labelled drug-drug interaction medication error [None]
  - Pulmonary embolism [Fatal]

NARRATIVE: CASE EVENT DATE: 2015
